FAERS Safety Report 11869899 (Version 1)
Quarter: 2015Q4

REPORT INFORMATION
  Report Type: Report from Study
  Country: US (occurrence: US)
  Receive Date: 20151228
  Receipt Date: 20151228
  Transmission Date: 20160305
  Serious: Yes (Other)
  Sender: FDA-Public Use
  Company Number: US-BEH-2015057019

PATIENT
  Sex: Female

DRUGS (1)
  1. ZEMAIRA [Suspect]
     Active Substance: .ALPHA.1-PROTEINASE INHIBITOR HUMAN
     Indication: PRODUCT USED FOR UNKNOWN INDICATION
     Dosage: LAST DOSE ON 12-DEC-2015
     Route: 042

REACTIONS (5)
  - Colorectal cancer [Unknown]
  - Abdominal pain [Unknown]
  - Amnesia [Unknown]
  - Rectal haemorrhage [Unknown]
  - Cancer surgery [Unknown]

NARRATIVE: CASE EVENT DATE: 2010
